FAERS Safety Report 4715867-7 (Version None)
Quarter: 2005Q3

REPORT INFORMATION
  Report Type: 
  Country: None (occurrence: None)
  Receive Date: 20050718
  Receipt Date: 20050707
  Transmission Date: 20060218
  Serious: Yes (Hospitalization)
  Sender: FDA-Public Use
  Company Number: SE-ROCHE-410140

PATIENT
  Age: 20 Year
  Sex: Male

DRUGS (3)
  1. ROACCUTAN [Suspect]
     Indication: ACNE
     Route: 048
     Dates: start: 20041125
  2. ROACCUTAN [Suspect]
     Route: 048
  3. ROACCUTAN [Suspect]
     Route: 048
     Dates: end: 20041220

REACTIONS (2)
  - BLOOD BILIRUBIN INCREASED [None]
  - RHABDOMYOLYSIS [None]
